FAERS Safety Report 8556492-X (Version None)
Quarter: 2012Q3

REPORT INFORMATION
  Report Type: 
  Country: None (occurrence: None)
  Receive Date: 20120726
  Receipt Date: 20120726
  Transmission Date: 20120928
  Serious: No
  Sender: FDA-Public Use
  Company Number: None

PATIENT
  Age: 61 Year
  Sex: Male
  Weight: 77.1115 kg

DRUGS (2)
  1. ACULAR OPTHALMIC DROPS [Concomitant]
  2. PREDNISOLONE [Suspect]
     Indication: CATARACT OPERATION
     Dosage: 1 GTT, QID, INTRAOCULAR
     Route: 031
     Dates: start: 20120701, end: 20120704

REACTIONS (2)
  - CORNEAL DISORDER [None]
  - VISUAL ACUITY REDUCED [None]
